FAERS Safety Report 6445268-5 (Version None)
Quarter: 2009Q4

REPORT INFORMATION
  Report Type: 
  Country: None (occurrence: None)
  Receive Date: 20091112
  Receipt Date: 20091022
  Transmission Date: 20100525
  Serious: Yes (Other)
  Sender: FDA-Public Use
  Company Number: 2009SP033026

PATIENT
  Age: 19 Year
  Sex: Female
  Weight: 58.9676 kg

DRUGS (1)
  1. NUVARING [Suspect]
     Indication: DRUG USE FOR UNKNOWN INDICATION
     Dosage: 1 DF QM
     Dates: start: 20091001

REACTIONS (1)
  - HAEMATOCHEZIA [None]
